FAERS Safety Report 18095059 (Version 3)
Quarter: 2021Q1

REPORT INFORMATION
  Report Type: Spontaneous
  Country: US (occurrence: US)
  Receive Date: 20200730
  Receipt Date: 20210215
  Transmission Date: 20210419
  Serious: No
  Sender: FDA-Public Use
  Company Number: US-AKCEA THERAPEUTICS-2020IS001274

PATIENT
  Age: 83 Year
  Sex: Female
  Weight: 55.41 kg

DRUGS (7)
  1. ELIQUIS [Concomitant]
     Active Substance: APIXABAN
     Route: 065
  2. TEGSEDI [Suspect]
     Active Substance: INOTERSEN SODIUM
     Indication: HEREDITARY NEUROPATHIC AMYLOIDOSIS
     Route: 058
     Dates: start: 20200113, end: 20200610
  3. MIDODRINE [Concomitant]
     Active Substance: MIDODRINE
     Route: 065
  4. ISSD (INTEGRATED SYRINGE SAFETY DEVICE) [Suspect]
     Active Substance: DEVICE
  5. KEPPRA [Concomitant]
     Active Substance: LEVETIRACETAM
     Route: 065
  6. AMIODARONE [Concomitant]
     Active Substance: AMIODARONE
     Route: 065
  7. TEGSEDI [Suspect]
     Active Substance: INOTERSEN SODIUM
     Route: 058
     Dates: end: 20200604

REACTIONS (7)
  - Platelet aggregation abnormal [Recovered/Resolved]
  - Platelet count decreased [Not Recovered/Not Resolved]
  - Dysphagia [Unknown]
  - Abdominal discomfort [Unknown]
  - Weight decreased [Unknown]
  - Decreased appetite [Unknown]
  - Adverse event [Recovered/Resolved]

NARRATIVE: CASE EVENT DATE: 20200608
